FAERS Safety Report 7584445-7 (Version None)
Quarter: 2011Q2

REPORT INFORMATION
  Report Type: 
  Country: None (occurrence: None)
  Receive Date: 20110630
  Receipt Date: 20110622
  Transmission Date: 20111010
  Serious: Yes (Other)
  Sender: FDA-Public Use
  Company Number: DE-UCBSA-036233

PATIENT
  Age: 70 Year
  Sex: Male

DRUGS (4)
  1. KEPPRA [Suspect]
     Dosage: UP TITRATED
     Dates: start: 20110101
  2. CARBAMAZEPIN HEXAL [Concomitant]
  3. KEPPRA [Suspect]
     Dosage: 250 MG
  4. KEPPRA [Suspect]
     Dosage: UCB GENERIC LEVETIRACETAM -750MG

REACTIONS (1)
  - URTICARIA [None]
